FAERS Safety Report 8120667-4 (Version None)
Quarter: 2012Q1

REPORT INFORMATION
  Report Type: 
  Country: None (occurrence: None)
  Receive Date: 20120207
  Receipt Date: 20120125
  Transmission Date: 20120608
  Serious: Yes (Life-Threatening, Hospitalization, Other)
  Sender: FDA-Public Use
  Company Number: DE-ROCHE-1034958

PATIENT
  Sex: Female
  Weight: 60 kg

DRUGS (5)
  1. OXALIPLATIN [Suspect]
     Indication: OESOPHAGEAL ADENOCARCINOMA
     Route: 042
     Dates: start: 20110804, end: 20110825
  2. HERCEPTIN [Suspect]
     Indication: OESOPHAGEAL ADENOCARCINOMA
     Route: 042
     Dates: start: 20110804, end: 20110825
  3. HERCEPTIN [Suspect]
     Route: 042
     Dates: start: 20110915, end: 20110915
  4. OXALIPLATIN [Suspect]
     Route: 042
     Dates: start: 20110915, end: 20110915
  5. FLUOROURACIL [Suspect]
     Indication: OESOPHAGEAL ADENOCARCINOMA
     Route: 042
     Dates: start: 20110915, end: 20110915

REACTIONS (2)
  - LONG QT SYNDROME [None]
  - TORSADE DE POINTES [None]
